FAERS Safety Report 9757564 (Version 6)
Quarter: 2018Q4

REPORT INFORMATION
  Report Type: Spontaneous
  Country: US (occurrence: US)
  Receive Date: 20131216
  Receipt Date: 20181225
  Transmission Date: 20190205
  Serious: Yes (Other)
  Sender: FDA-Public Use
  Company Number: US-009507513-1312USA004843

PATIENT
  Age: 52 Year
  Sex: Female

DRUGS (4)
  1. PROVENTIL [Suspect]
     Active Substance: ALBUTEROL
     Dosage: 2 INHALATIONS IN THE MORNING AND 2 INHALATIONS AT NIGHT
     Route: 055
     Dates: start: 198810
  2. PROVENTIL [Suspect]
     Active Substance: ALBUTEROL
     Indication: ASTHMA
     Dosage: 2 PUFFS EVERY 4 TO 6 HOURS AS NEEDED
     Route: 055
     Dates: start: 199804
  3. SUDAFED [Concomitant]
     Active Substance: PSEUDOEPHEDRINE HYDROCHLORIDE
     Dosage: UNK
  4. CHLOR-TRIMETON [Concomitant]
     Active Substance: CHLORPHENIRAMINE MALEATE
     Dosage: UNK
     Route: 048

REACTIONS (7)
  - Drug ineffective [Unknown]
  - Device malfunction [Unknown]
  - Incorrect dose administered [Unknown]
  - Product dose omission [Unknown]
  - Asthma [Recovered/Resolved]
  - Product quality issue [Unknown]
  - Choking [Recovered/Resolved]

NARRATIVE: CASE EVENT DATE: 20131101
